FAERS Safety Report 7606246-3 (Version None)
Quarter: 2011Q3

REPORT INFORMATION
  Report Type: 
  Country: None (occurrence: None)
  Receive Date: 20110713
  Receipt Date: 20110701
  Transmission Date: 20111222
  Serious: Yes (Hospitalization, Other)
  Sender: FDA-Public Use
  Company Number: US-BAYER-2011-019784

PATIENT
  Age: 21 Year
  Sex: Female
  Weight: 113.38 kg

DRUGS (3)
  1. YAZ [Suspect]
     Dosage: UNK
     Route: 048
     Dates: start: 20070701, end: 20080201
  2. IBUPROFEN [Concomitant]
     Dosage: UNK
     Dates: start: 20090401
  3. LORTAB [Concomitant]

REACTIONS (8)
  - JAUNDICE EXTRAHEPATIC OBSTRUCTIVE [None]
  - INJURY [None]
  - BILE DUCT OBSTRUCTION [None]
  - CHOLECYSTITIS CHRONIC [None]
  - BILE DUCT STONE [None]
  - PAIN [None]
  - DEFORMITY [None]
  - CHOLELITHIASIS [None]
